FAERS Safety Report 5300361-5 (Version None)
Quarter: 2007Q2

REPORT INFORMATION
  Report Type: 
  Country: None (occurrence: None)
  Receive Date: 20070418
  Receipt Date: 20070403
  Transmission Date: 20071010
  Serious: Yes (Hospitalization, Other)
  Sender: FDA-Public Use
  Company Number: US-AMGEN-STX210385

PATIENT
  Sex: Female

DRUGS (9)
  1. ENBREL [Suspect]
     Indication: RHEUMATOID ARTHRITIS
     Route: 058
     Dates: start: 20000310
  2. OXYCONTIN [Suspect]
     Route: 065
     Dates: start: 20051201
  3. DARVOCET-N 100 [Suspect]
     Route: 065
  4. PREDNISONE TAB [Concomitant]
     Route: 048
  5. PREDNISONE TAB [Concomitant]
     Route: 048
  6. TRILISATE [Concomitant]
  7. NEURONTIN [Concomitant]
     Route: 048
  8. NEXIUM [Concomitant]
     Route: 048
  9. ALLEGRA [Concomitant]
     Route: 065

REACTIONS (8)
  - ADRENAL INSUFFICIENCY [None]
  - BILE DUCT STONE [None]
  - DUODENITIS [None]
  - DYSPNOEA [None]
  - HYPERTRIGLYCERIDAEMIA [None]
  - INFLUENZA LIKE ILLNESS [None]
  - JOINT DISLOCATION [None]
  - PANCREATITIS ACUTE [None]
